FAERS Safety Report 16486054 (Version 1)
Quarter: 2019Q2

REPORT INFORMATION
  Report Type: Spontaneous
  Country: US (occurrence: US)
  Receive Date: 20190627
  Receipt Date: 20190627
  Transmission Date: 20190711
  Serious: No
  Sender: FDA-Public Use
  Company Number: US-009507513-1906USA010753

PATIENT
  Sex: Male

DRUGS (1)
  1. ASMANEX [Suspect]
     Active Substance: MOMETASONE FUROATE
     Dosage: 1 PUFF DAILY AS NEEDED. STRENGTH: 220 Y
     Route: 055

REACTIONS (4)
  - Product quality issue [Unknown]
  - No adverse event [Unknown]
  - Inappropriate schedule of product administration [Unknown]
  - Poor quality device used [Unknown]
